FAERS Safety Report 6823764-6 (Version None)
Quarter: 2010Q3

REPORT INFORMATION
  Report Type: 
  Country: None (occurrence: None)
  Receive Date: 20100708
  Receipt Date: 20061218
  Transmission Date: 20110219
  Serious: Yes (Other)
  Sender: FDA-Public Use
  Company Number: US-PFIZER INC-2006105642

PATIENT
  Age: 67 Year
  Sex: Female
  Weight: 83.5 kg

DRUGS (13)
  1. CHANTIX [Suspect]
     Dates: start: 20060101, end: 20060101
  2. ZETIA [Concomitant]
  3. ZOCOR [Concomitant]
  4. SPIRIVA [Concomitant]
  5. THEOPHYLLINE [Concomitant]
  6. VASOTEC [Concomitant]
  7. ACETYLSALICYLIC ACID [Concomitant]
  8. ADVAIR DISKUS 100/50 [Concomitant]
  9. OMEPRAZOLE [Concomitant]
  10. LACTULOSE [Concomitant]
  11. ENALAPRIL MALEATE [Concomitant]
  12. IPRATROPIUM [Concomitant]
  13. ALBUTEROL [Concomitant]

REACTIONS (4)
  - CHEST PAIN [None]
  - GASTROOESOPHAGEAL REFLUX DISEASE [None]
  - NAUSEA [None]
  - PALPITATIONS [None]
